FAERS Safety Report 13033660 (Version 1)
Quarter: 2016Q4

REPORT INFORMATION
  Report Type: Spontaneous
  Country: GB (occurrence: GB)
  Receive Date: 20161216
  Receipt Date: 20161216
  Transmission Date: 20170207
  Serious: Yes (Hospitalization)
  Sender: FDA-Public Use
  Company Number: GB-VELOXIS PHARMACEUTICALS-1060893

PATIENT
  Age: 76 Year
  Sex: Male

DRUGS (17)
  1. DIGOXIN. [Suspect]
     Active Substance: DIGOXIN
     Route: 048
  2. ENVARSUS XR [Suspect]
     Active Substance: TACROLIMUS
     Route: 048
     Dates: start: 20161117
  3. ENVARSUS XR [Suspect]
     Active Substance: TACROLIMUS
     Indication: RENAL TRANSPLANT
     Route: 048
     Dates: start: 20161021, end: 20161117
  4. AMLODIPINE [Concomitant]
     Active Substance: AMLODIPINE BESYLATE
  5. MYCOPHENOLATE MOFETIL. [Concomitant]
     Active Substance: MYCOPHENOLATE MOFETIL
     Dates: start: 20161021
  6. ATORVASTATIN [Concomitant]
     Active Substance: ATORVASTATIN
  7. COTRIMOXAZOLE [Concomitant]
     Active Substance: SULFAMETHOXAZOLE\TRIMETHOPRIM
  8. RENAVIT [Concomitant]
  9. LANSOPRAZOLE. [Concomitant]
     Active Substance: LANSOPRAZOLE
  10. SODIUM BICARBONATE. [Concomitant]
     Active Substance: SODIUM BICARBONATE
  11. WARFARIN SODIUM. [Concomitant]
     Active Substance: WARFARIN SODIUM
  12. ADALAT CC [Concomitant]
     Active Substance: NIFEDIPINE
  13. ALFACALCIDOL [Concomitant]
     Active Substance: ALFACALCIDOL
  14. DALTEPARIN [Concomitant]
     Active Substance: DALTEPARIN
     Dates: start: 20161025
  15. FUROSEMIDE. [Concomitant]
     Active Substance: FUROSEMIDE
  16. PARACETAMOL [Concomitant]
     Active Substance: ACETAMINOPHEN
  17. PREDNISOLONE. [Concomitant]
     Active Substance: PREDNISOLONE
     Dates: start: 20161021, end: 20161025

REACTIONS (3)
  - Confusional state [Recovered/Resolved]
  - Hallucination, visual [Recovering/Resolving]
  - Inappropriate schedule of drug administration [None]
